FAERS Safety Report 8809309 (Version 1)
Quarter: 2012Q4

REPORT INFORMATION
  Report Type: 
  Country: SE (occurrence: SE)
  Receive Date: 20120926
  Receipt Date: 20120926
  Transmission Date: 20130627
  Serious: Yes (Hospitalization)
  Sender: FDA-Public Use
  Company Number: SE-PFIZER INC-2012234769

PATIENT
  Age: 78 Year
  Sex: Male
  Weight: 78 kg

DRUGS (6)
  1. GENOTROPIN [Suspect]
     Dosage: 0.1 mg, 1x/day, 7injections/week
     Route: 058
     Dates: start: 20030901
  2. KREDEX [Concomitant]
     Indication: ANGINA PECTORIS
     Dosage: UNK
     Dates: start: 19960701
  3. ZOCORD [Concomitant]
     Indication: HYPERCHOLESTEROLAEMIA
     Dosage: UNK
     Dates: start: 19960701
  4. LANZO [Concomitant]
     Indication: GASTRODUODENITIS
     Dosage: UNK
     Dates: start: 19960701
  5. TROMBYL [Concomitant]
     Indication: ARTERIOSCLEROSIS
     Dosage: UNK
     Dates: start: 19960701
  6. TRADIL [Concomitant]
     Indication: ANALGESIC THERAPY
     Dosage: UNK
     Dates: start: 20070530

REACTIONS (1)
  - Rectal polyp [Unknown]
